FAERS Safety Report 7767074 (Version 2)
Quarter: 2012Q4

REPORT INFORMATION
  Report Type: 
  Country: VE (occurrence: VE)
  Receive Date: 20110120
  Receipt Date: 20121109
  Transmission Date: 20130627
  Serious: Yes (Hospitalization)
  Sender: FDA-Public Use
  Company Number: PHHY2011VE03000

PATIENT
  Sex: Female

DRUGS (5)
  1. ACLASTA [Suspect]
     Indication: OSTEOPOROSIS
     Dosage: 5 mg/annually
     Route: 042
     Dates: start: 201007
  2. ACLASTA [Suspect]
     Dosage: 5 mg/annually
     Route: 042
     Dates: start: 2011
  3. ADALAT OROS [Concomitant]
     Indication: HYPERTENSION
     Dosage: 30 mg, daily
     Route: 048
     Dates: start: 2006
  4. ENALAPRIL [Concomitant]
     Indication: HYPERTENSION
     Dosage: 10 mg, daily
     Route: 048
  5. GLUCOSAMINE [Concomitant]
     Route: 048

REACTIONS (2)
  - Fracture [Recovered/Resolved]
  - Bone decalcification [Unknown]
